FAERS Safety Report 24120410 (Version 1)
Quarter: 2024Q3

REPORT INFORMATION
  Report Type: Spontaneous
  Country: US (occurrence: US)
  Receive Date: 20240722
  Receipt Date: 20240722
  Transmission Date: 20241016
  Serious: No
  Sender: PFIZER
  Company Number: US-PFIZER INC-202400217921

PATIENT
  Age: 68 Year
  Sex: Female

DRUGS (4)
  1. INLYTA [Suspect]
     Active Substance: AXITINIB
     Dosage: 3 MG, 2X/DAY (THREE 1 MG TABLETS)
     Route: 048
     Dates: start: 2022
  2. AMLODIPINE [Concomitant]
     Active Substance: AMLODIPINE BESYLATE
     Dosage: UNK
  3. CARVEDILOL [Concomitant]
     Active Substance: CARVEDILOL
     Dosage: UNK
  4. HYDROCHLOROTHIAZIDE\IRBESARTAN [Concomitant]
     Active Substance: HYDROCHLOROTHIAZIDE\IRBESARTAN
     Dosage: UNK

REACTIONS (2)
  - Rash [Not Recovered/Not Resolved]
  - Fatigue [Not Recovered/Not Resolved]
